FAERS Safety Report 6611175-8 (Version None)
Quarter: 2010Q1

REPORT INFORMATION
  Report Type: 
  Country: None (occurrence: None)
  Receive Date: 20100301
  Receipt Date: 20100301
  Transmission Date: 20100710
  Serious: No
  Sender: FDA-Public Use
  Company Number: None

PATIENT
  Age: 83 Year
  Sex: Male
  Weight: 83.0083 kg

DRUGS (1)
  1. AZASITE [Suspect]
     Indication: DRY EYE
     Dosage: 1 DROP INTO BOTH EYES DAILY
     Route: 047
     Dates: start: 20100215

REACTIONS (2)
  - EYE IRRITATION [None]
  - EYE PAIN [None]
